FAERS Safety Report 4563930-6 (Version None)
Quarter: 2005Q1

REPORT INFORMATION
  Report Type: 
  Country: None (occurrence: None)
  Receive Date: 20050128
  Receipt Date: 20050118
  Transmission Date: 20050727
  Serious: Yes (Other)
  Sender: FDA-Public Use
  Company Number: GB-JNJFOC-20040900021

PATIENT
  Sex: Male
  Weight: 55 kg

DRUGS (2)
  1. CONCERTA [Suspect]
     Route: 049
  2. CONCERTA [Suspect]
     Indication: ATTENTION DEFICIT/HYPERACTIVITY DISORDER
     Route: 049

REACTIONS (1)
  - NEUTROPENIA [None]
